FAERS Safety Report 6414287-7 (Version None)
Quarter: 2009Q4

REPORT INFORMATION
  Report Type: 
  Country: None (occurrence: None)
  Receive Date: 20091026
  Receipt Date: 20091015
  Transmission Date: 20100525
  Serious: Yes (Hospitalization)
  Sender: FDA-Public Use
  Company Number: NZ-JNJFOC-20090801076

PATIENT
  Sex: Male
  Weight: 80.1 kg

DRUGS (44)
  1. GOLIMUMAB [Suspect]
     Route: 058
     Dates: start: 20060823, end: 20090704
  2. GOLIMUMAB [Suspect]
     Route: 058
     Dates: start: 20060823, end: 20090704
  3. GOLIMUMAB [Suspect]
     Route: 058
     Dates: start: 20060823, end: 20090704
  4. GOLIMUMAB [Suspect]
     Route: 058
     Dates: start: 20060823, end: 20090704
  5. GOLIMUMAB [Suspect]
     Route: 058
     Dates: start: 20060823, end: 20090704
  6. GOLIMUMAB [Suspect]
     Route: 058
     Dates: start: 20060823, end: 20090704
  7. GOLIMUMAB [Suspect]
     Route: 058
     Dates: start: 20060823, end: 20090704
  8. GOLIMUMAB [Suspect]
     Route: 058
     Dates: start: 20060823, end: 20090704
  9. GOLIMUMAB [Suspect]
     Route: 058
     Dates: start: 20060823, end: 20090704
  10. GOLIMUMAB [Suspect]
     Route: 058
     Dates: start: 20060823, end: 20090704
  11. GOLIMUMAB [Suspect]
     Route: 058
     Dates: start: 20060823, end: 20090704
  12. GOLIMUMAB [Suspect]
     Route: 058
     Dates: start: 20060823, end: 20090704
  13. GOLIMUMAB [Suspect]
     Route: 058
     Dates: start: 20060823, end: 20090704
  14. GOLIMUMAB [Suspect]
     Route: 058
     Dates: start: 20060823, end: 20090704
  15. GOLIMUMAB [Suspect]
     Route: 058
     Dates: start: 20060823, end: 20090704
  16. GOLIMUMAB [Suspect]
     Route: 058
     Dates: start: 20060823, end: 20090704
  17. GOLIMUMAB [Suspect]
     Route: 058
     Dates: start: 20060823, end: 20090704
  18. GOLIMUMAB [Suspect]
     Route: 058
     Dates: start: 20060823, end: 20090704
  19. GOLIMUMAB [Suspect]
     Route: 058
     Dates: start: 20060823, end: 20090704
  20. GOLIMUMAB [Suspect]
     Route: 058
     Dates: start: 20060823, end: 20090704
  21. GOLIMUMAB [Suspect]
     Route: 058
     Dates: start: 20060823, end: 20090704
  22. GOLIMUMAB [Suspect]
     Route: 058
     Dates: start: 20060823, end: 20090704
  23. GOLIMUMAB [Suspect]
     Route: 058
     Dates: start: 20060823, end: 20090704
  24. GOLIMUMAB [Suspect]
     Indication: RHEUMATOID ARTHRITIS
     Route: 058
     Dates: start: 20060823, end: 20090704
  25. METHOTREXATE [Suspect]
     Route: 048
  26. METHOTREXATE [Suspect]
     Route: 048
  27. METHOTREXATE [Suspect]
     Route: 048
  28. METHOTREXATE [Suspect]
     Route: 048
  29. METHOTREXATE [Suspect]
     Route: 048
  30. METHOTREXATE [Suspect]
     Route: 048
  31. METHOTREXATE [Suspect]
     Route: 048
  32. METHOTREXATE [Suspect]
     Route: 048
  33. METHOTREXATE [Suspect]
     Route: 048
  34. METHOTREXATE [Suspect]
     Route: 048
  35. METHOTREXATE [Suspect]
     Indication: RHEUMATOID ARTHRITIS
     Route: 048
  36. PARACETAMOL [Concomitant]
     Route: 048
  37. OMEPRAZOLE [Concomitant]
     Route: 048
  38. FOLIC ACID [Concomitant]
     Route: 048
  39. METHOTREXATE [Concomitant]
     Route: 048
  40. METAMUCIL [Concomitant]
     Route: 048
  41. PROBIOTIC [Concomitant]
     Route: 048
  42. PENTASA [Concomitant]
     Route: 048
  43. NAPROXEN [Concomitant]
     Route: 048
  44. PENTASA [Concomitant]
     Route: 054

REACTIONS (3)
  - DEBRIDEMENT [None]
  - OPEN FRACTURE [None]
  - SKIN GRAFT [None]
